FAERS Safety Report 24784189 (Version 1)
Quarter: 2024Q4

REPORT INFORMATION
  Report Type: Spontaneous
  Country: US (occurrence: US)
  Receive Date: 20241227
  Receipt Date: 20241227
  Transmission Date: 20250114
  Serious: No
  Sender: BRISTOL-MYERS SQUIBB COMPANY
  Company Number: US-BRISTOL-MYERS SQUIBB COMPANY-2024-200331

PATIENT
  Age: 82 Year
  Sex: Male

DRUGS (2)
  1. ELIQUIS [Suspect]
     Active Substance: APIXABAN
     Indication: Deep vein thrombosis
     Dates: start: 2024
  2. ELIQUIS [Suspect]
     Active Substance: APIXABAN
     Dates: start: 2024

REACTIONS (2)
  - Epistaxis [Unknown]
  - Off label use [Unknown]

NARRATIVE: CASE EVENT DATE: 20240101
